FAERS Safety Report 23035883 (Version 1)
Quarter: 2023Q4

REPORT INFORMATION
  Report Type: Spontaneous
  Country: US (occurrence: US)
  Receive Date: 20231006
  Receipt Date: 20231006
  Transmission Date: 20240110
  Serious: Yes (Other)
  Sender: FDA-Public Use
  Company Number: US-AMGEN-USASP2023173572

PATIENT
  Sex: Female

DRUGS (3)
  1. XGEVA [Suspect]
     Active Substance: DENOSUMAB
     Indication: Product used for unknown indication
     Dosage: UNK
     Route: 065
  2. LETROZOLE [Concomitant]
     Active Substance: LETROZOLE
  3. LYNPARZA [Concomitant]
     Active Substance: OLAPARIB
     Dosage: UNK

REACTIONS (10)
  - Breast reconstruction [Unknown]
  - Ligament disorder [Unknown]
  - Tendon disorder [Unknown]
  - Physical deconditioning [Unknown]
  - Muscle strain [Unknown]
  - Unevaluable event [Unknown]
  - Musculoskeletal disorder [Unknown]
  - Adverse event [Unknown]
  - Back pain [Unknown]
  - Arthralgia [Unknown]

NARRATIVE: CASE EVENT DATE: 20230101
